FAERS Safety Report 17803843 (Version 5)
Quarter: 2020Q3

REPORT INFORMATION
  Report Type: Spontaneous
  Country: DE (occurrence: DE)
  Receive Date: 20200519
  Receipt Date: 20200925
  Transmission Date: 20201102
  Serious: Yes (Hospitalization, Other)
  Sender: FDA-Public Use
  Company Number: DE-ALLERGAN-2019305US

PATIENT
  Sex: Female
  Weight: 56 kg

DRUGS (4)
  1. LETROZOLE. [Suspect]
     Active Substance: LETROZOLE
     Indication: BREAST CANCER METASTATIC
     Dosage: 2.5 MG, QD
     Route: 048
     Dates: start: 20190425, end: 20190610
  2. PACLITAXEL. [Suspect]
     Active Substance: PACLITAXEL
     Indication: BREAST CANCER METASTATIC
     Dosage: 94 MG, Q WEEK
     Route: 042
     Dates: start: 20190711, end: 20200129
  3. DEX UNK [Suspect]
     Active Substance: UNSPECIFIED INGREDIENT
     Indication: PRODUCT USED FOR UNKNOWN INDICATION
     Route: 065
  4. CEFTRIAXONE. [Concomitant]
     Active Substance: CEFTRIAXONE
     Indication: PRODUCT USED FOR UNKNOWN INDICATION
     Dosage: 2 OT (GR), QD
     Route: 065
     Dates: start: 20190724, end: 20190730

REACTIONS (11)
  - Anaemia [Recovered/Resolved]
  - Diarrhoea [Recovered/Resolved]
  - C-reactive protein increased [Recovering/Resolving]
  - Syncope [Recovered/Resolved]
  - Pain in extremity [Recovering/Resolving]
  - Neutropenia [Not Recovered/Not Resolved]
  - Infection [Not Recovered/Not Resolved]
  - Swelling face [Recovered/Resolved]
  - Clostridium difficile infection [Recovered/Resolved]
  - Polyneuropathy [Recovered/Resolved]
  - Pancytopenia [Recovered/Resolved]

NARRATIVE: CASE EVENT DATE: 20190611
